FAERS Safety Report 23039886 (Version 2)
Quarter: 2023Q4

REPORT INFORMATION
  Report Type: Spontaneous
  Country: CN (occurrence: CN)
  Receive Date: 20231006
  Receipt Date: 20231121
  Transmission Date: 20240109
  Serious: Yes (Other)
  Sender: FDA-Public Use
  Company Number: CN-Blueprint Medicines Corporation-LT-CN-2023-001524

PATIENT
  Age: 23 Year
  Sex: Male

DRUGS (3)
  1. AYVAKIT [Suspect]
     Active Substance: AVAPRITINIB
     Indication: Systemic mastocytosis
     Dosage: 100 MG, 1X/DAY
     Route: 048
  2. IDARUBICIN [Suspect]
     Active Substance: IDARUBICIN
     Indication: Systemic mastocytosis
     Route: 065
  3. CYTARABINE [Suspect]
     Active Substance: CYTARABINE
     Indication: Systemic mastocytosis
     Route: 065

REACTIONS (2)
  - Thrombocytopenia [Recovered/Resolved]
  - Myelosuppression [Recovered/Resolved]
